FAERS Safety Report 7603182-3 (Version None)
Quarter: 2011Q3

REPORT INFORMATION
  Report Type: 
  Country: None (occurrence: None)
  Receive Date: 20110712
  Receipt Date: 20110629
  Transmission Date: 20111222
  Serious: Yes (Other)
  Sender: FDA-Public Use
  Company Number: BR-PFIZER INC-2011153213

PATIENT
  Age: 73 Year
  Sex: Male

DRUGS (3)
  1. LOSARTAN [Concomitant]
  2. CAPTOPRIL [Concomitant]
  3. AMIODARONE HCL [Suspect]
     Dosage: 200 MG, 1X/DAY

REACTIONS (5)
  - ABDOMINAL PAIN [None]
  - VOMITING [None]
  - WEIGHT DECREASED [None]
  - ATRIOVENTRICULAR BLOCK [None]
  - TOXICITY TO VARIOUS AGENTS [None]
